FAERS Safety Report 7009664-X (Version None)
Quarter: 2010Q3

REPORT INFORMATION
  Report Type: 
  Country: None (occurrence: None)
  Receive Date: 20100923
  Receipt Date: 20100916
  Transmission Date: 20110219
  Serious: Yes (Other)
  Sender: FDA-Public Use
  Company Number: CA-PFIZER INC-2010100917

PATIENT
  Age: 55 Year
  Sex: Male

DRUGS (2)
  1. LIPITOR [Suspect]
     Dosage: 10 MG, UNK
     Dates: start: 20100101, end: 20100701
  2. COLCHICINE [Concomitant]
     Dosage: UNK

REACTIONS (3)
  - MUSCLE ENZYME INCREASED [None]
  - MUSCLE SPASMS [None]
  - MYALGIA [None]
